FAERS Safety Report 7350950-1 (Version None)
Quarter: 2011Q1

REPORT INFORMATION
  Report Type: 
  Country: None (occurrence: None)
  Receive Date: 20110314
  Receipt Date: 20110214
  Transmission Date: 20110831
  Serious: No
  Sender: FDA-Public Use
  Company Number: US-B.I. PHARMACEUTICALS,INC./RIDGEFIELD-2010-BP-01286BP

PATIENT
  Sex: Female

DRUGS (1)
  1. MIRAPEX [Suspect]
     Indication: RESTLESS LEGS SYNDROME
     Dates: start: 20031204, end: 20091201

REACTIONS (11)
  - COMPULSIVE SHOPPING [None]
  - WEIGHT INCREASED [None]
  - PAIN [None]
  - PATHOLOGICAL GAMBLING [None]
  - COMPULSIVE SEXUAL BEHAVIOUR [None]
  - HYPERPHAGIA [None]
  - ANXIETY [None]
  - HYPERSEXUALITY [None]
  - DEPRESSION [None]
  - EMOTIONAL DISTRESS [None]
  - OBSESSIVE-COMPULSIVE DISORDER [None]
